FAERS Safety Report 12859371 (Version 3)
Quarter: 2016Q4

REPORT INFORMATION
  Report Type: Spontaneous
  Country: US (occurrence: US)
  Receive Date: 20161018
  Receipt Date: 20161118
  Transmission Date: 20170207
  Serious: No
  Sender: FDA-Public Use
  Company Number: US-SHIRE-US201614449

PATIENT
  Sex: Female
  Weight: 66.67 kg

DRUGS (1)
  1. XIIDRA [Suspect]
     Active Substance: LIFITEGRAST
     Indication: DRY EYE
     Dosage: 1 GTT (EACH EYE), 2X/DAY:BID
     Route: 047
     Dates: start: 201609, end: 20161006

REACTIONS (7)
  - Eye irritation [Unknown]
  - Eye pruritus [Unknown]
  - Wrong technique in product usage process [Recovered/Resolved]
  - Product quality issue [Recovered/Resolved]
  - Eyelid disorder [Unknown]
  - Drug ineffective [Unknown]
  - Eye discharge [Unknown]

NARRATIVE: CASE EVENT DATE: 2016
